FAERS Safety Report 24723206 (Version 1)
Quarter: 2024Q4

REPORT INFORMATION
  Report Type: Spontaneous
  Country: US (occurrence: US)
  Receive Date: 20241211
  Receipt Date: 20241211
  Transmission Date: 20250115
  Serious: No
  Sender: MYLAN
  Company Number: US-MYLANLABS-2024M1104222

PATIENT
  Sex: Female

DRUGS (2)
  1. ESTRADIOL TRANSDERMAL SYSTEM [Suspect]
     Active Substance: ESTRADIOL
     Indication: Menopause
     Dosage: 0.1 MILLIGRAM, QD (PER DAY, ONCE-WEEKLY)
     Route: 062
     Dates: start: 20241030
  2. ESTRADIOL TRANSDERMAL SYSTEM [Suspect]
     Active Substance: ESTRADIOL
     Indication: Hormone replacement therapy
     Dosage: 0.1 MILLIGRAM, QD (PER DAY, ONCE-WEEKLY)
     Route: 062
     Dates: start: 2024

REACTIONS (5)
  - Application site pruritus [Unknown]
  - Application site irritation [Unknown]
  - Expired product administered [Unknown]
  - Product size issue [Unknown]
  - Product adhesion issue [Unknown]
